FAERS Safety Report 24666991 (Version 1)
Quarter: 2024Q4

REPORT INFORMATION
  Report Type: Report from Study
  Country: CO (occurrence: CO)
  Receive Date: 20241126
  Receipt Date: 20241126
  Transmission Date: 20250114
  Serious: Yes (Hospitalization)
  Sender: BIOGEN
  Company Number: CO-BIOGEN-2024BI01291385

PATIENT
  Age: 53 Year
  Sex: Male
  Weight: 77 kg

DRUGS (1)
  1. TYSABRI [Suspect]
     Active Substance: NATALIZUMAB
     Indication: Multiple sclerosis
     Dosage: 1 INTRAVENOUS INFUSION OF 300 MG OF TYSABRI (NATALIZUMAB) EVERY 28 DAYS. THE DATE OF THE PATIENT ...
     Route: 050
     Dates: start: 20230516

REACTIONS (2)
  - Multiple sclerosis relapse [Not Recovered/Not Resolved]
  - Muscle disorder [Recovered/Resolved]

NARRATIVE: CASE EVENT DATE: 20240919
